FAERS Safety Report 16068871 (Version 1)
Quarter: 2019Q1

REPORT INFORMATION
  Report Type: Spontaneous
  Country: US (occurrence: US)
  Receive Date: 20190313
  Receipt Date: 20190313
  Transmission Date: 20190418
  Serious: No
  Sender: FDA-Public Use
  Company Number: US-TEVA-2019-US-1022193

PATIENT
  Age: 50 Year
  Sex: Male

DRUGS (1)
  1. ATORVASTATIN TEVA [Suspect]
     Active Substance: ATORVASTATIN
     Route: 065

REACTIONS (3)
  - Myalgia [Unknown]
  - Pain [Unknown]
  - Hypokinesia [Unknown]
